FAERS Safety Report 24612179 (Version 5)
Quarter: 2025Q2

REPORT INFORMATION
  Report Type: Spontaneous
  Country: IE (occurrence: IE)
  Receive Date: 20241113
  Receipt Date: 20250606
  Transmission Date: 20250716
  Serious: Yes (Hospitalization, Other)
  Sender: CELLTRION
  Company Number: IE-CELLTRION INC.-2024IE027838

PATIENT

DRUGS (6)
  1. ADALIMUMAB [Suspect]
     Active Substance: ADALIMUMAB
     Indication: Colitis ulcerative
     Route: 065
  2. ADALIMUMAB [Suspect]
     Active Substance: ADALIMUMAB
     Dosage: 40 MG, FORTNIGHTLY (MAINTENANCE DOSE)/ADDITIONAL INFORMATION ON DRUG (FREE TEXT): DOSAGE1: UNIT=NOT
     Route: 065
  3. INFLIXIMAB [Suspect]
     Active Substance: INFLIXIMAB
     Indication: Colitis ulcerative
     Route: 065
  4. PENTASA [Concomitant]
     Active Substance: MESALAMINE
     Indication: Colitis ulcerative
     Route: 065
  5. PENTASA [Concomitant]
     Active Substance: MESALAMINE
  6. MECLIZINE [Concomitant]
     Active Substance: MECLIZINE HYDROCHLORIDE
     Indication: Colitis ulcerative
     Route: 065

REACTIONS (13)
  - Organising pneumonia [Recovered/Resolved]
  - Mycobacterial infection [Unknown]
  - Transferrin saturation decreased [Recovered/Resolved]
  - Serum ferritin increased [Recovered/Resolved]
  - White blood cell count increased [Recovered/Resolved]
  - Platelet count increased [Recovered/Resolved]
  - Hilar lymphadenopathy [Unknown]
  - Blood albumin decreased [Recovered/Resolved]
  - Microcytic anaemia [Recovered/Resolved]
  - Dyspnoea [Unknown]
  - Flushing [Unknown]
  - Vomiting [Unknown]
  - Off label use [Recovered/Resolved]
